FAERS Safety Report 17758997 (Version 1)
Quarter: 2020Q2

REPORT INFORMATION
  Report Type: Spontaneous
  Country: US (occurrence: US)
  Receive Date: 20200508
  Receipt Date: 20200508
  Transmission Date: 20200714
  Serious: Yes (Other)
  Sender: FDA-Public Use
  Company Number: US-ASTRAZENECA-2020SE59139

PATIENT
  Sex: Female

DRUGS (3)
  1. PREDNISONE. [Concomitant]
     Active Substance: PREDNISONE
  2. SYMBICORT [Suspect]
     Active Substance: BUDESONIDE\FORMOTEROL FUMARATE DIHYDRATE
     Indication: ASTHMA
     Dosage: 80MCG UNKNOWN
     Route: 055
  3. SYMBICORT [Suspect]
     Active Substance: BUDESONIDE\FORMOTEROL FUMARATE DIHYDRATE
     Indication: ASTHMA
     Dosage: 160MCG UNKNOWN
     Route: 055

REACTIONS (11)
  - Paranasal sinus hyposecretion [Unknown]
  - Dry throat [Unknown]
  - Oropharyngeal discomfort [Unknown]
  - Adverse drug reaction [Unknown]
  - Drug ineffective [Unknown]
  - Sinusitis [Unknown]
  - Eosinophil count increased [Unknown]
  - Dysphagia [Unknown]
  - Sinus disorder [Unknown]
  - Weight decreased [Unknown]
  - Bronchitis chronic [Unknown]
